FAERS Safety Report 4444061-2 (Version None)
Quarter: 2004Q3

REPORT INFORMATION
  Report Type: 
  Country: None (occurrence: None)
  Receive Date: 20040729
  Receipt Date: 20040204
  Transmission Date: 20050211
  Serious: Yes (Hospitalization, Other)
  Sender: FDA-Public Use
  Company Number: US-JNJFOC-20040101494

PATIENT
  Age: 38 Year
  Sex: Male
  Weight: 105.6881 kg

DRUGS (5)
  1. RISPERDAL [Suspect]
     Indication: PSYCHOTIC DISORDER
     Dosage: SEE IMAGE
  2. ZANTAC [Concomitant]
  3. NORVASC [Concomitant]
  4. VASOTEC [Concomitant]
  5. LESCOL [Concomitant]

REACTIONS (2)
  - DIABETIC KETOACIDOSIS [None]
  - WEIGHT INCREASED [None]
